FAERS Safety Report 9430333 (Version 2)
Quarter: 2013Q4

REPORT INFORMATION
  Report Type: Spontaneous
  Country: BR (occurrence: BR)
  Receive Date: 20130730
  Receipt Date: 20131002
  Transmission Date: 20140711
  Serious: Yes (Death)
  Sender: FDA-Public Use
  Company Number: BR-GLAXOSMITHKLINE-A1035072A

PATIENT
  Age: 49 Year
  Sex: Female

DRUGS (5)
  1. TYKERB [Suspect]
     Indication: METASTATIC NEOPLASM
     Dosage: 250MG UNKNOWN
     Route: 048
     Dates: end: 20130713
  2. ANASTROZOLE [Suspect]
     Indication: PRODUCT USED FOR UNKNOWN INDICATION
     Route: 065
  3. HERCEPTIN [Suspect]
     Indication: PRODUCT USED FOR UNKNOWN INDICATION
     Route: 065
     Dates: end: 20130713
  4. CHEMOTHERAPY [Concomitant]
  5. RADIOTHERAPY [Concomitant]

REACTIONS (5)
  - Pancreatitis acute [Unknown]
  - Metastases to central nervous system [Fatal]
  - Metastases to bone [Fatal]
  - Amylase increased [Unknown]
  - Lipase increased [Unknown]
